FAERS Safety Report 4937211-2 (Version None)
Quarter: 2006Q1

REPORT INFORMATION
  Report Type: 
  Country: None (occurrence: None)
  Receive Date: 20060302
  Receipt Date: 20060209
  Transmission Date: 20060701
  Serious: Yes (Other)
  Sender: FDA-Public Use
  Company Number: DE200601001198

PATIENT
  Age: 59 Year
  Sex: Female

DRUGS (3)
  1. CYMBALTA [Suspect]
     Indication: MAJOR DEPRESSION
     Dosage: 60 MG, ORAL
     Route: 048
     Dates: start: 20050101
  2. ZYPREXA [Suspect]
     Dosage: 2.5 MG, ORAL
     Route: 048
     Dates: start: 20050101, end: 20051228
  3. MAGNESIUM (MAGNESIUM) [Concomitant]

REACTIONS (2)
  - ALANINE AMINOTRANSFERASE INCREASED [None]
  - ASPARTATE AMINOTRANSFERASE INCREASED [None]
